FAERS Safety Report 4629358-5 (Version None)
Quarter: 2005Q2

REPORT INFORMATION
  Report Type: 
  Country: None (occurrence: None)
  Receive Date: 20050404
  Receipt Date: 20050321
  Transmission Date: 20051028
  Serious: Yes (Death)
  Sender: FDA-Public Use
  Company Number: WAES 0503USA03747

PATIENT
  Age: 12 Year
  Sex: Female

DRUGS (6)
  1. COSMOGEN                   (DACTINOMYCIN) [Suspect]
     Indication: EWING'S SARCOMA METASTATIC
     Dosage: IV
     Route: 042
  2. CARBOPLATIN [Concomitant]
  3. EPIRUBICIN [Concomitant]
  4. ETOPOSIDE [Concomitant]
  5. IFOSFAMIDE [Concomitant]
  6. VINCRISTINE SULFATE [Concomitant]

REACTIONS (1)
  - SEPSIS [None]
